FAERS Safety Report 9801498 (Version 1)
Quarter: 2014Q1

REPORT INFORMATION
  Report Type: Spontaneous
  Country: GB (occurrence: GB)
  Receive Date: 20140107
  Receipt Date: 20140107
  Transmission Date: 20141002
  Serious: Yes (Other)
  Sender: FDA-Public Use
  Company Number: GB-TEVA-453812ISR

PATIENT
  Sex: Female

DRUGS (10)
  1. ERYTHROMYCIN [Suspect]
     Indication: GASTROINTESTINAL MOTILITY DISORDER
     Route: 065
  2. OMEPRAZOLE [Interacting]
     Route: 065
  3. BISOPROLOL [Interacting]
     Route: 065
  4. DEXDOR [Interacting]
     Indication: SEDATION
     Route: 065
     Dates: start: 20131218
  5. PANTOPRAZOLE [Concomitant]
     Route: 065
  6. CO-AMOXICLAV [Concomitant]
     Route: 065
  7. ENOXAPARIN [Concomitant]
     Route: 065
  8. GABAPENTIN [Concomitant]
     Route: 065
  9. PARACETAMOL [Concomitant]
     Route: 065
  10. FUROSEMIDE [Concomitant]
     Route: 065

REACTIONS (4)
  - Drug interaction [Unknown]
  - Alanine aminotransferase increased [Unknown]
  - Aspartate aminotransferase increased [Unknown]
  - Blood bilirubin increased [Unknown]
